FAERS Safety Report 9786276 (Version 2)
Quarter: 2014Q2

REPORT INFORMATION
  Report Type: Spontaneous
  Country: US (occurrence: US)
  Receive Date: 20131227
  Receipt Date: 20140508
  Transmission Date: 20141212
  Serious: Yes (Other)
  Sender: FDA-Public Use
  Company Number: US-PERRIGO-13US012968

PATIENT
  Age: 1 Year
  Sex: Male
  Weight: 9.52 kg

DRUGS (3)
  1. DIPHENHYDRAMINE HYDROCHLORIDE 2.5 MG/ML CHERRY 379 [Suspect]
     Indication: ORAL HERPES
     Dosage: SMALL AMOUNT MIXED WITH MAALOX, PRN
     Route: 061
     Dates: start: 201311, end: 201311
  2. DIPHENHYDRAMINE HYDROCHLORIDE 2.5 MG/ML CHERRY 379 [Suspect]
     Indication: ACCIDENTAL OVERDOSE
     Dosage: APPROXIMATELY 300 MG, SINGLE
     Route: 048
     Dates: start: 20131216, end: 20131216
  3. MAALOX                             /00082501/ [Suspect]
     Indication: ORAL HERPES
     Dosage: UNK
     Route: 061
     Dates: start: 201311, end: 201311

REACTIONS (7)
  - Accidental overdose [Unknown]
  - Pyrexia [Not Recovered/Not Resolved]
  - Coordination abnormal [Recovered/Resolved]
  - Off label use [Unknown]
  - Drug administered to patient of inappropriate age [Unknown]
  - Wrong technique in drug usage process [Unknown]
  - Somnolence [Recovered/Resolved]
